FAERS Safety Report 5119806-9 (Version None)
Quarter: 2006Q4

REPORT INFORMATION
  Report Type: 
  Country: None (occurrence: None)
  Receive Date: 20061003
  Receipt Date: 20060925
  Transmission Date: 20070319
  Serious: Yes (Hospitalization, Other)
  Sender: FDA-Public Use
  Company Number: 2006UW18756

PATIENT
  Age: 74 Year
  Sex: Female
  Weight: 85.3 kg

DRUGS (6)
  1. SEROQUEL [Suspect]
     Indication: SLEEP DISORDER
     Route: 048
     Dates: start: 20050101
  2. LEXAPRO [Concomitant]
  3. PROTONIX [Concomitant]
  4. BLOOD PRESSURE MEDICINE [Concomitant]
     Indication: BLOOD PRESSURE ABNORMAL
  5. PAIN MEDICINE [Concomitant]
     Indication: FIBROMYALGIA
  6. PAIN MEDICINE [Concomitant]

REACTIONS (3)
  - DIABETES INSIPIDUS [None]
  - HYPONATRAEMIA [None]
  - KIDNEY INFECTION [None]
